FAERS Safety Report 5940040-4 (Version None)
Quarter: 2008Q4

REPORT INFORMATION
  Report Type: 
  Country: None (occurrence: None)
  Receive Date: 20081104
  Receipt Date: 20081024
  Transmission Date: 20090506
  Serious: Yes (Hospitalization)
  Sender: FDA-Public Use
  Company Number: PHHY2008SI25902

PATIENT
  Sex: Female

DRUGS (4)
  1. LESCOL XL [Suspect]
     Route: 065
  2. CORYOL [Concomitant]
     Dosage: 6.25 MG, Q12H
  3. MICARDIS HCT [Concomitant]
     Dosage: 80/12.5 MG
  4. PREDUCTAL [Concomitant]

REACTIONS (1)
  - CARDIAC DISORDER [None]
